FAERS Safety Report 10904374 (Version 1)
Quarter: 2015Q1

REPORT INFORMATION
  Report Type: Spontaneous
  Country: US (occurrence: None)
  Receive Date: 20150304
  Receipt Date: 20150304
  Transmission Date: 20150721
  Serious: No
  Sender: FDA-Public Use
  Company Number: None

PATIENT
  Age: 64 Year
  Sex: Female

DRUGS (13)
  1. PRAVASTATIN [Concomitant]
     Active Substance: PRAVASTATIN\PRAVASTATIN SODIUM
  2. HUMULIN N [Concomitant]
     Active Substance: INSULIN HUMAN
  3. HUMULIN RCIPRO [Concomitant]
  4. METHYLPHENIDATE [Concomitant]
     Active Substance: METHYLPHENIDATE
  5. BACLOFEN. [Concomitant]
     Active Substance: BACLOFEN
  6. SEPTRA DS [Concomitant]
     Active Substance: SULFAMETHOXAZOLE\TRIMETHOPRIM
  7. ATENOLOL. [Concomitant]
     Active Substance: ATENOLOL
  8. AMPYRA [Suspect]
     Active Substance: DALFAMPRIDINE
     Indication: MULTIPLE SCLEROSIS
     Route: 048
     Dates: start: 201102
  9. NEFAZODONE [Concomitant]
     Active Substance: NEFAZODONE
  10. LOSARTAN [Concomitant]
     Active Substance: LOSARTAN
  11. METFORMIN [Concomitant]
     Active Substance: METFORMIN HYDROCHLORIDE
  12. IMIPRAMINE [Concomitant]
     Active Substance: IMIPRAMINE
  13. ALENDRONATE [Concomitant]
     Active Substance: ALENDRONATE SODIUM

REACTIONS (1)
  - Urinary tract infection [None]

NARRATIVE: CASE EVENT DATE: 20131016
